FAERS Safety Report 25006752 (Version 2)
Quarter: 2025Q3

REPORT INFORMATION
  Report Type: Spontaneous
  Country: US (occurrence: US)
  Receive Date: 20250225
  Receipt Date: 20250809
  Transmission Date: 20251021
  Serious: Yes (Other)
  Sender: ALEXION PHARMACEUTICALS
  Company Number: US-ASTRAZENECA-202502USA015809US

PATIENT
  Sex: Male

DRUGS (2)
  1. CRESTOR [Interacting]
     Active Substance: ROSUVASTATIN CALCIUM
     Route: 065
  2. VYNDAMAX [Interacting]
     Active Substance: TAFAMIDIS
     Route: 065

REACTIONS (4)
  - Cardiac amyloidosis [Unknown]
  - Pericardial effusion [Unknown]
  - Myalgia [Unknown]
  - Drug interaction [Unknown]
